FAERS Safety Report 9897406 (Version 1)
Quarter: 2014Q1

REPORT INFORMATION
  Report Type: Spontaneous
  Country: IT (occurrence: IT)
  Receive Date: 20140214
  Receipt Date: 20140214
  Transmission Date: 20141002
  Serious: Yes (Hospitalization, Other)
  Sender: FDA-Public Use
  Company Number: IT-ASTRAZENECA-2014SE09510

PATIENT
  Age: 25728 Day
  Sex: Male

DRUGS (12)
  1. SEROQUEL [Suspect]
     Indication: SUICIDE ATTEMPT
     Route: 048
  2. SEROQUEL [Suspect]
     Indication: SUICIDE ATTEMPT
     Dosage: 2700 MG IN TOTAL, ONCE (9 TABLETS)
     Route: 048
     Dates: start: 20131218, end: 20131218
  3. CITALOPRAM [Suspect]
     Indication: SUICIDE ATTEMPT
     Route: 048
  4. CITALOPRAM [Suspect]
     Indication: SUICIDE ATTEMPT
     Dosage: 120 MG IN TOTAL, ONCE (6 TABLETS)
     Route: 048
     Dates: start: 20131218, end: 20131218
  5. SIMVASTATIN [Concomitant]
  6. GLYCLAZIDE [Concomitant]
  7. TRIATEC [Concomitant]
  8. CARDIRENE [Concomitant]
     Route: 048
  9. LANSOX [Concomitant]
  10. ZUGLIMED [Concomitant]
  11. EFFICIB [Concomitant]
     Dosage: 500/850 MG
  12. TAVOR [Concomitant]

REACTIONS (4)
  - Drug abuse [Recovering/Resolving]
  - Gait disturbance [Recovering/Resolving]
  - Intentional self-injury [Unknown]
  - Tachycardia [Recovering/Resolving]
